FAERS Safety Report 9011626 (Version 2)
Quarter: 2013Q1

REPORT INFORMATION
  Report Type: Spontaneous
  Country: US (occurrence: US)
  Receive Date: 20130108
  Receipt Date: 20130211
  Transmission Date: 20140127
  Serious: No
  Sender: FDA-Public Use
  Company Number: US-PFIZER INC-2013004218

PATIENT
  Age: 25 Year
  Sex: Female

DRUGS (3)
  1. MEDROXYPROGESTERONE ACETATE [Suspect]
     Indication: CONTRACEPTION
     Dosage: 1 ML, ONCE EVERY 13WEEKS
     Route: 030
     Dates: start: 20120405, end: 20120920
  2. MEDROXYPROGESTERONE ACETATE [Suspect]
     Dosage: 150 MG/ML, EVERY 13 WKS
     Route: 030
     Dates: start: 20120405
  3. MEDROXYPROGESTERONE ACETATE [Suspect]
     Dosage: 150 MG/ML, EVERY 13 WKS
     Route: 030
     Dates: end: 20120920

REACTIONS (1)
  - Metrorrhagia [Recovered/Resolved]
